FAERS Safety Report 17584360 (Version 2)
Quarter: 2020Q1

REPORT INFORMATION
  Report Type: Spontaneous
  Country: FR (occurrence: FR)
  Receive Date: 20200326
  Receipt Date: 20200330
  Transmission Date: 20200409
  Serious: Yes (Death, Hospitalization)
  Sender: FDA-Public Use
  Company Number: FR-TEVA-2020-FR-1210167

PATIENT
  Age: 62 Year
  Sex: Male
  Weight: 60 kg

DRUGS (2)
  1. OXALIPLATINE [Suspect]
     Active Substance: OXALIPLATIN
     Indication: COLORECTAL ADENOCARCINOMA
     Dosage: 130 MG/M2
     Route: 042
     Dates: start: 20200122, end: 20200213
  2. CAPECITABINE. [Suspect]
     Active Substance: CAPECITABINE
     Indication: COLORECTAL ADENOCARCINOMA
     Dosage: 3240 MG
     Route: 048
     Dates: start: 20200122, end: 202002

REACTIONS (5)
  - Respiratory distress [Fatal]
  - Acute kidney injury [Fatal]
  - Diarrhoea [Fatal]
  - Vomiting [Fatal]
  - Haematemesis [Fatal]

NARRATIVE: CASE EVENT DATE: 202002
